FAERS Safety Report 7263629-1 (Version None)
Quarter: 2011Q1

REPORT INFORMATION
  Report Type: 
  Country: None (occurrence: None)
  Receive Date: 20110130
  Receipt Date: 20101025
  Transmission Date: 20110831
  Serious: No
  Sender: FDA-Public Use
  Company Number: US-ABBOTT-10P-163-0682162-00

PATIENT
  Sex: Male

DRUGS (2)
  1. LISINOPRIL [Concomitant]
     Indication: HYPERTENSION
  2. HUMIRA [Suspect]
     Indication: PSORIATIC ARTHROPATHY
     Dates: start: 20100401

REACTIONS (6)
  - SCIATICA [None]
  - DISCOMFORT [None]
  - SWELLING [None]
  - ARTHRALGIA [None]
  - PAIN [None]
  - PAIN IN EXTREMITY [None]
